FAERS Safety Report 18006519 (Version 1)
Quarter: 2020Q3

REPORT INFORMATION
  Report Type: Spontaneous
  Country: US (occurrence: US)
  Receive Date: 20200710
  Receipt Date: 20200710
  Transmission Date: 20201103
  Serious: Yes (Other)
  Sender: FDA-Public Use
  Company Number: None

PATIENT
  Age: 69 Year
  Sex: Male

DRUGS (1)
  1. ATORVASTATIN [Suspect]
     Active Substance: ATORVASTATIN
     Indication: INSURANCE ISSUE
     Route: 048

REACTIONS (2)
  - Sensory disturbance [None]
  - Suicidal ideation [None]

NARRATIVE: CASE EVENT DATE: 20191119
